FAERS Safety Report 8927224 (Version 1)
Quarter: 2012Q4

REPORT INFORMATION
  Report Type: 
  Country: US (occurrence: US)
  Receive Date: 20121127
  Receipt Date: 20121127
  Transmission Date: 20130627
  Serious: Yes (Other)
  Sender: FDA-Public Use
  Company Number: US-BAYER-2012-124025

PATIENT
  Age: 53 Year
  Sex: Female
  Weight: 74.83 kg

DRUGS (3)
  1. ASP SEVERE SINUS CONGESTION ALLERGY + COUGH LG [Suspect]
     Dosage: 1 DF, ONCE
     Route: 048
     Dates: start: 20121120, end: 20121120
  2. KLAMAZAPAN [Concomitant]
  3. ONE A DAY WOMEN^S [Concomitant]

REACTIONS (3)
  - Dyspnoea [Recovered/Resolved]
  - Lung disorder [Recovered/Resolved]
  - Back pain [Not Recovered/Not Resolved]
